FAERS Safety Report 4518444-6 (Version None)
Quarter: 2004Q4

REPORT INFORMATION
  Report Type: 
  Country: None (occurrence: None)
  Receive Date: 20041201
  Receipt Date: 20041119
  Transmission Date: 20050328
  Serious: Yes (Life-Threatening)
  Sender: FDA-Public Use
  Company Number: TCI2004A04240

PATIENT
  Age: 72 Year
  Sex: Female

DRUGS (5)
  1. ACTOS [Suspect]
     Indication: DIABETES MELLITUS
     Dosage: 30 MG (30 MG, 1 IN 1 D)
     Route: 048
     Dates: start: 20030301, end: 20040430
  2. BASEN (VOGLIBOSE) [Concomitant]
  3. GLICLAZIDE [Concomitant]
  4. NIFEDIPINE [Concomitant]
  5. SARPOGRELATE HYDROCHLORIDE [Concomitant]

REACTIONS (10)
  - ATYPICAL MYCOBACTERIAL INFECTION [None]
  - AUTOIMMUNE HEPATITIS [None]
  - BLOOD IMMUNOGLOBULIN G INCREASED [None]
  - DECREASED APPETITE [None]
  - DIABETIC GANGRENE [None]
  - HEPATIC NECROSIS [None]
  - HEPATITIS FULMINANT [None]
  - LEG AMPUTATION [None]
  - LIVER DISORDER [None]
  - REFUSAL OF TREATMENT BY PATIENT [None]
